FAERS Safety Report 12068645 (Version 9)
Quarter: 2018Q1

REPORT INFORMATION
  Report Type: Spontaneous
  Country: US (occurrence: US)
  Receive Date: 20160211
  Receipt Date: 20180219
  Transmission Date: 20180508
  Serious: Yes (Other)
  Sender: FDA-Public Use
  Company Number: PHEH2016US003256

PATIENT
  Age: 34 Year
  Sex: Female
  Weight: 72.56 kg

DRUGS (2)
  1. ONDANSETRON [Suspect]
     Active Substance: ONDANSETRON
     Indication: PRODUCT USED FOR UNKNOWN INDICATION
     Dosage: 8 MG, UNK
     Route: 048
  2. ZOFRAN [Suspect]
     Active Substance: ONDANSETRON HYDROCHLORIDE
     Indication: VOMITING IN PREGNANCY
     Dosage: 8 MG, QD
     Route: 048
     Dates: start: 20130625, end: 20130725

REACTIONS (16)
  - Haemorrhage [Unknown]
  - Emotional distress [Unknown]
  - Pain [Unknown]
  - Rhinitis allergic [Unknown]
  - Amenorrhoea [Unknown]
  - Product use in unapproved indication [Unknown]
  - Thyroid dysfunction in pregnancy [Unknown]
  - Bronchitis [Unknown]
  - Sepsis [Unknown]
  - Depression [Unknown]
  - Anxiety [Unknown]
  - Upper respiratory tract infection [Unknown]
  - Maternal exposure during pregnancy [Unknown]
  - Injury [Unknown]
  - Asthma [Unknown]
  - Dysuria [Recovered/Resolved]

NARRATIVE: CASE EVENT DATE: 20140208
